FAERS Safety Report 12039939 (Version 1)
Quarter: 2016Q1

REPORT INFORMATION
  Report Type: Spontaneous
  Country: US (occurrence: US)
  Receive Date: 20160208
  Receipt Date: 20160208
  Transmission Date: 20160526
  Serious: Yes (Other)
  Sender: FDA-Public Use
  Company Number: US-BRISTOL-MYERS SQUIBB COMPANY-BMS-2016-006441

PATIENT
  Sex: Female

DRUGS (3)
  1. OPDIVO [Suspect]
     Active Substance: NIVOLUMAB
     Indication: CERVIX CARCINOMA RECURRENT
     Dosage: UNK
     Route: 042
     Dates: start: 201511
  2. OPDIVO [Suspect]
     Active Substance: NIVOLUMAB
     Indication: METASTASES TO LUNG
     Dosage: UNK
     Route: 042
     Dates: start: 20151203
  3. OPDIVO [Suspect]
     Active Substance: NIVOLUMAB
     Dosage: UNK
     Route: 042
     Dates: start: 20160106

REACTIONS (3)
  - Deep vein thrombosis [Unknown]
  - Malaise [Unknown]
  - Off label use [Unknown]
